FAERS Safety Report 14990729 (Version 1)
Quarter: 2018Q2

REPORT INFORMATION
  Report Type: Spontaneous
  Country: FR (occurrence: FR)
  Receive Date: 20180608
  Receipt Date: 20180608
  Transmission Date: 20180711
  Serious: Yes (Hospitalization)
  Sender: FDA-Public Use
  Company Number: FR-PFIZER INC-2018228373

PATIENT
  Age: 43 Year
  Sex: Male

DRUGS (4)
  1. OLUMIANT [Suspect]
     Active Substance: BARICITINIB
     Indication: POLYARTHRITIS
     Dosage: 4 MG, 1X/DAY
     Route: 048
     Dates: start: 201710
  2. CORTANCYL [Suspect]
     Active Substance: PREDNISONE
     Indication: POLYARTHRITIS
     Dosage: 30 MG, 1X/DAY
     Route: 048
     Dates: start: 2013
  3. TRAMADOL HCL [Suspect]
     Active Substance: TRAMADOL HYDROCHLORIDE
     Indication: POLYARTHRITIS
     Route: 048
     Dates: start: 2015
  4. METHOTREXATE SODIUM. [Suspect]
     Active Substance: METHOTREXATE SODIUM
     Indication: POLYARTHRITIS
     Dosage: 15 MG, WEEKLY
     Dates: start: 201712

REACTIONS (1)
  - Volvulus [Recovered/Resolved with Sequelae]

NARRATIVE: CASE EVENT DATE: 20180401
